FAERS Safety Report 5377246-1 (Version None)
Quarter: 2007Q3

REPORT INFORMATION
  Report Type: 
  Country: None (occurrence: None)
  Receive Date: 20070703
  Receipt Date: 20070622
  Transmission Date: 20080115
  Serious: Yes (Death, Hospitalization)
  Sender: FDA-Public Use
  Company Number: US-ELI_LILLY_AND_COMPANY-US200610004235

PATIENT
  Age: 88 Year
  Sex: Female
  Weight: 40.816 kg

DRUGS (2)
  1. FORTEO [Suspect]
     Indication: OSTEOPOROSIS
     Dosage: 20 UG, DAILY (1/D)
     Dates: start: 20060101
  2. PLAVIX [Concomitant]
     Dates: end: 20060730

REACTIONS (8)
  - ASTHENIA [None]
  - BACK PAIN [None]
  - BEDRIDDEN [None]
  - FALL [None]
  - GENERAL PHYSICAL HEALTH DETERIORATION [None]
  - RENAL FAILURE [None]
  - SPINAL FRACTURE [None]
  - UPPER RESPIRATORY TRACT INFECTION [None]
